FAERS Safety Report 6595771-2 (Version None)
Quarter: 2010Q1

REPORT INFORMATION
  Report Type: 
  Country: None (occurrence: None)
  Receive Date: 20100216
  Receipt Date: 20100205
  Transmission Date: 20100710
  Serious: Yes (Disabling)
  Sender: FDA-Public Use
  Company Number: EUS-2010-00152

PATIENT
  Age: 57 Year
  Sex: Female
  Weight: 78.4723 kg

DRUGS (15)
  1. QUADRAMET [Suspect]
     Indication: BONE PAIN
     Dosage: INTRAVENOUS
     Route: 042
     Dates: start: 20100121
  2. CYMBALTA [Suspect]
     Dosage: ENTERIC COATED, 1 PO BID, ORAL
     Route: 048
  3. LORAZEPAM [Suspect]
     Indication: NAUSEA
     Dosage: 1 PO Q4H PRN, ORAL
     Route: 048
  4. MORPHINE SULFATE [Suspect]
     Indication: PAIN
     Dosage: 10 MG/5 ML; 15 ML PO Q2-4H PRN, ORAL
     Route: 048
  5. MORPHINE SUL HYT [Suspect]
     Dosage: SUSTAINED ACTION, 1 PO Q12H, ORAL
     Route: 048
  6. AMBIEN CR, PO SOLID SR (ZOLPIDEM TARTRATE)(TABLETS) [Concomitant]
  7. AZOR, PO SOLID (AMLODIPINE)(TABLETS) [Concomitant]
  8. CALTRATE 600+D PLUS, PO SOLID (CALCITE D)(TABLETS) [Concomitant]
  9. FEMARA, PO SOLID (LETROZOLE) (TABLETS) [Concomitant]
  10. LACTULOSE , PO LIQ (LACTULOSE) (SOLUTION) [Concomitant]
  11. PREVACID, PO SOLID (LANSOPRAZOLE) (CAPSULES) [Concomitant]
  12. SUPER EPA, PO SOLID (OMEGA-3 FATTY ACIDS) (CAPSULES) [Concomitant]
  13. SYNTHROID, PO SOLID (LEVOTHYROXINE SODIUM) (TABLETS) [Concomitant]
  14. VITAMTM B-12,  PO SOLID (CYANOCOBALAMIN) (TABLETS) [Concomitant]
  15. ZOMIG, PO SOLID (ZOLMITRIPTAN) (TABLETS) [Concomitant]

REACTIONS (13)
  - BLOOD CREATININE INCREASED [None]
  - BLOOD GLUCOSE INCREASED [None]
  - CARBOHYDRATE ANTIGEN 27.29 INCREASED [None]
  - DRUG INTERACTION [None]
  - DRUG WITHDRAWAL SYNDROME [None]
  - EOSINOPHIL PERCENTAGE INCREASED [None]
  - HAEMOGLOBIN DECREASED [None]
  - LYMPHOCYTE PERCENTAGE DECREASED [None]
  - MEAN PLATELET VOLUME DECREASED [None]
  - MONOCYTE PERCENTAGE INCREASED [None]
  - RED BLOOD CELL COUNT DECREASED [None]
  - TREMOR [None]
  - WHITE BLOOD CELL COUNT DECREASED [None]
